FAERS Safety Report 26092098 (Version 2)
Quarter: 2025Q4

REPORT INFORMATION
  Report Type: Spontaneous
  Country: US (occurrence: US)
  Receive Date: 20251126
  Receipt Date: 20251202
  Transmission Date: 20260117
  Serious: Yes (Other)
  Sender: PFIZER
  Company Number: US-PFIZER INC-202500230334

PATIENT
  Age: 67 Year
  Sex: Female
  Weight: 93 kg

DRUGS (1)
  1. TIVDAK [Suspect]
     Active Substance: TISOTUMAB VEDOTIN-TFTV
     Indication: Vulval cancer
     Dosage: INFUSE 186 MG VIA IV EVERY 21 DAYS
     Route: 042
     Dates: start: 20250112

REACTIONS (3)
  - Vulval cancer [Unknown]
  - Malignant neoplasm progression [Unknown]
  - Off label use [Unknown]

NARRATIVE: CASE EVENT DATE: 20250101
